FAERS Safety Report 12574714 (Version 3)
Quarter: 2016Q3

REPORT INFORMATION
  Report Type: Spontaneous
  Country: IT (occurrence: IT)
  Receive Date: 20160720
  Receipt Date: 20160803
  Transmission Date: 20161109
  Serious: Yes (Other)
  Sender: FDA-Public Use
  Company Number: IT-PFIZER INC-2016347365

PATIENT
  Age: 25 Year
  Sex: Male

DRUGS (1)
  1. FLUCONAZOLE. [Suspect]
     Active Substance: FLUCONAZOLE
     Indication: CANDIDA INFECTION
     Dosage: UNK
     Route: 048
     Dates: start: 20160529, end: 20160608

REACTIONS (3)
  - Hyperventilation [Unknown]
  - Dyspepsia [Unknown]
  - Palpitations [Unknown]

NARRATIVE: CASE EVENT DATE: 20160529
